FAERS Safety Report 8538879-4 (Version None)
Quarter: 2012Q3

REPORT INFORMATION
  Report Type: 
  Country: None (occurrence: None)
  Receive Date: 20120713
  Receipt Date: 20110525
  Transmission Date: 20120928
  Serious: Yes (Hospitalization)
  Sender: FDA-Public Use
  Company Number: 933767

PATIENT
  Sex: Female

DRUGS (3)
  1. CARBOPLATIN [Suspect]
     Indication: OVARIAN CANCER
     Dosage: AUC 6, UNKNOWN, INTRAVENOUS (NOT OTHERWISE SPECIFIED)
     Route: 042
  2. DOCETAXEL [Suspect]
     Indication: OVARIAN CANCER
     Dosage: 75 MG/M^2 (UNKNOWN), INTRAVENOUS (NOT OTHERWISE SPECIFIED)
     Route: 042
  3. ERLOTINIB HYDROCHLORIDE [Suspect]
     Indication: OVARIAN CANCER
     Dosage: STARTING DOSE 50 MG DAILY, UNKNOWN, ORAL MAINTENANCE THERAPY WITH 150 MG DAILY (UNKNOWN)
     Route: 048

REACTIONS (3)
  - OVARIAN CANCER RECURRENT [None]
  - ANASTOMOTIC LEAK [None]
  - LARGE INTESTINE PERFORATION [None]
